FAERS Safety Report 17393480 (Version 6)
Quarter: 2020Q4

REPORT INFORMATION
  Report Type: Report from Study
  Country: CA (occurrence: CA)
  Receive Date: 20200208
  Receipt Date: 20201102
  Transmission Date: 20210113
  Serious: Yes (Hospitalization, Other)
  Sender: FDA-Public Use
  Company Number: CA-TAKEDA-2020TUS007347

PATIENT
  Age: 77 Year
  Sex: Male

DRUGS (6)
  1. DEXAMETHASONE. [Suspect]
     Active Substance: DEXAMETHASONE
     Indication: PLASMA CELL MYELOMA
     Dosage: UNK
     Route: 065
     Dates: start: 20200824
  2. LENALIDOMIDE [Concomitant]
     Active Substance: LENALIDOMIDE
     Indication: PLASMA CELL MYELOMA
     Dosage: 15 MILLIGRAM
     Route: 065
  3. GRANULOCYTE COLONY STIMULATING FACTOR [Concomitant]
     Active Substance: GRANULOCYTE COLONY-STIMULATING FACTOR NOS
     Indication: NEUTROPHIL COUNT ABNORMAL
     Dosage: UNK
     Route: 065
  4. POMALIDOMIDE [Suspect]
     Active Substance: POMALIDOMIDE
     Indication: PLASMA CELL MYELOMA
     Dosage: UNK
     Route: 065
     Dates: start: 20200824
  5. IXAZOMIB [Suspect]
     Active Substance: IXAZOMIB
     Dosage: UNK
     Route: 065
     Dates: start: 20200824
  6. IXAZOMIB [Suspect]
     Active Substance: IXAZOMIB
     Indication: PLASMA CELL MYELOMA
     Dosage: 4 MILLIGRAM
     Route: 048
     Dates: start: 20170301

REACTIONS (5)
  - Inappropriate schedule of product administration [Unknown]
  - Dysstasia [Unknown]
  - Off label use [Unknown]
  - Asthenia [Unknown]
  - Seizure [Unknown]

NARRATIVE: CASE EVENT DATE: 20200824
